FAERS Safety Report 6806467-3 (Version None)
Quarter: 2010Q2

REPORT INFORMATION
  Report Type: 
  Country: None (occurrence: None)
  Receive Date: 20100629
  Receipt Date: 20080206
  Transmission Date: 20101027
  Serious: No
  Sender: FDA-Public Use
  Company Number: US-PFIZER INC-2008011677

PATIENT
  Age: 70 Year
  Sex: Male
  Weight: 78.47 kg

DRUGS (4)
  1. XANAX [Suspect]
  2. AMBIEN [Suspect]
  3. LEVOTHYROXINE SODIUM [Concomitant]
  4. HERBAL PREPARATION [Concomitant]

REACTIONS (1)
  - SOMNOLENCE [None]
